FAERS Safety Report 4850392-4 (Version None)
Quarter: 2005Q4

REPORT INFORMATION
  Report Type: 
  Country: None (occurrence: None)
  Receive Date: 20051123
  Receipt Date: 20050923
  Transmission Date: 20060501
  Serious: No
  Sender: FDA-Public Use
  Company Number: TPA2005A01111

PATIENT
  Age: 79 Year
  Sex: Male
  Weight: 82.5547 kg

DRUGS (12)
  1. ROZEREM [Suspect]
     Indication: INSOMNIA
     Dosage: 8 MG, QHS, PER ORAL
     Route: 048
     Dates: start: 20050916, end: 20050922
  2. PRILOSEC [Concomitant]
  3. HYOSCYAMINE (HYOSCYAMINE) [Concomitant]
  4. HYTRIN [Concomitant]
  5. PROSCAR [Concomitant]
  6. BETAGAN [Concomitant]
  7. FLONASE [Concomitant]
  8. CELEBREX [Concomitant]
  9. ULTRAM [Concomitant]
  10. CRESTOR [Concomitant]
  11. GLUTOFAC (GLUTOFAC) [Concomitant]
  12. FOLTX (TRIOBE) [Concomitant]

REACTIONS (1)
  - SOMNOLENCE [None]
